FAERS Safety Report 15588083 (Version 1)
Quarter: 2018Q4

REPORT INFORMATION
  Report Type: Spontaneous
  Country: ZA (occurrence: ZA)
  Receive Date: 20181105
  Receipt Date: 20181105
  Transmission Date: 20190205
  Serious: Yes (Other)
  Sender: FDA-Public Use
  Company Number: ZA-PROVELL PHARMACEUTICALS-2058437

PATIENT
  Sex: Female

DRUGS (13)
  1. BILOCOR [Suspect]
     Active Substance: BISOPROLOL FUMARATE
  2. ALTOSEC [Suspect]
     Active Substance: OMEPRAZOLE
  3. AMLOC (RANITIDINE HYDROCHLORIDE) [Suspect]
     Active Substance: RANITIDINE HYDROCHLORIDE
  4. CIPLAZAR [Suspect]
     Active Substance: LOSARTAN POTASSIUM
  5. NUZAK [Suspect]
     Active Substance: FLUOXETINE HYDROCHLORIDE
  6. CLOPIWIN PLUS(NEFAZAN COMPUESTO) [Suspect]
     Active Substance: ASPIRIN\CLOPIDOGREL BISULFATE
  7. EUTHYROX [Suspect]
     Active Substance: LEVOTHYROXINE SODIUM
     Indication: PRODUCT USED FOR UNKNOWN INDICATION
  8. ZUVAMOR [Suspect]
     Active Substance: ROSUVASTATIN
  9. FLOMIST [Suspect]
     Active Substance: FLUTICASONE PROPIONATE
  10. CELEBREX [Suspect]
     Active Substance: CELECOXIB
  11. TOPRAFLUX [Suspect]
     Active Substance: PANTOPRAZOLE SODIUM
  12. INDOBLOK [Suspect]
     Active Substance: PROPRANOLOL HYDROCHLORIDE
  13. VESICARE [Suspect]
     Active Substance: SOLIFENACIN SUCCINATE

REACTIONS (1)
  - Eye disorder [Unknown]
